FAERS Safety Report 9224570 (Version 1)
Quarter: 2013Q2

REPORT INFORMATION
  Report Type: Spontaneous
  Country: US (occurrence: None)
  Receive Date: 20130411
  Receipt Date: 20130411
  Transmission Date: 20140414
  Serious: Yes (Hospitalization)
  Sender: FDA-Public Use
  Company Number: None

PATIENT
  Age: 93 Year
  Sex: Male
  Weight: 79.09 kg

DRUGS (23)
  1. COUMADIN [Suspect]
     Indication: OPEN REDUCTION OF FRACTURE
     Dosage: ?  DAILY  PO?RECENT
     Route: 048
  2. COUMADIN [Suspect]
     Indication: ATRIAL FIBRILLATION
     Dosage: ?  DAILY  PO?RECENT
     Route: 048
  3. ASA [Suspect]
     Dosage: 81MG  DAILY  PO?RECENT
     Route: 048
  4. LIDOCAINE [Concomitant]
  5. TYLENOL [Concomitant]
  6. NORCO [Concomitant]
  7. ALLOPURINOL [Concomitant]
  8. ALPRAZOLAM [Concomitant]
  9. BICALOTAMIDE [Concomitant]
  10. CA CARB [Concomitant]
  11. CALCITROL [Concomitant]
  12. COLCRYS [Concomitant]
  13. SENOKOT S [Concomitant]
  14. DOXAZOSIN [Concomitant]
  15. LASIX [Concomitant]
  16. MAGNESIUM [Concomitant]
  17. MEGESTROL [Concomitant]
  18. MVI [Concomitant]
  19. PANTOPRAZOLE [Concomitant]
  20. POLYETHYLENE GLYCOL [Concomitant]
  21. PREDNISONE [Concomitant]
  22. CRESTOR [Concomitant]
  23. SERTRALINE [Concomitant]

REACTIONS (6)
  - Haematemesis [None]
  - Occult blood positive [None]
  - International normalised ratio increased [None]
  - Upper gastrointestinal haemorrhage [None]
  - Blood urea increased [None]
  - Coagulopathy [None]
